FAERS Safety Report 15337909 (Version 1)
Quarter: 2018Q4

REPORT INFORMATION
  Report Type: Spontaneous
  Country: GB (occurrence: GB)
  Receive Date: 20180831
  Receipt Date: 20180831
  Transmission Date: 20190204
  Serious: Yes (Other)
  Sender: FDA-Public Use
  Company Number: GB-COLGATE PALMOLIVE COMPANY-20180801979

PATIENT

DRUGS (1)
  1. PEROXYL MOUTHWASH [Suspect]
     Active Substance: HYDROGEN PEROXIDE

REACTIONS (1)
  - Oral mucosal blistering [Not Recovered/Not Resolved]
